FAERS Safety Report 23883807 (Version 3)
Quarter: 2024Q2

REPORT INFORMATION
  Report Type: Spontaneous
  Country: CO (occurrence: CO)
  Receive Date: 20240522
  Receipt Date: 20240624
  Transmission Date: 20240715
  Serious: Yes (Other)
  Sender: FDA-Public Use
  Company Number: CO-GLAXOSMITHKLINE-CO2024AMR052335

PATIENT

DRUGS (2)
  1. NUCALA [Suspect]
     Active Substance: MEPOLIZUMAB
     Indication: Asthma
     Dosage: 100 MG, MO
     Dates: start: 20240419
  2. TIOTROPIUM [Concomitant]
     Active Substance: TIOTROPIUM
     Indication: Product used for unknown indication
     Dosage: UNK

REACTIONS (22)
  - Colitis [Recovered/Resolved]
  - Urinary bladder haemorrhage [Recovered/Resolved]
  - Dysuria [Recovered/Resolved]
  - Blood urine present [Recovered/Resolved]
  - Back pain [Recovered/Resolved]
  - Wheezing [Recovered/Resolved]
  - Urinary tract infection [Recovered/Resolved]
  - Chest discomfort [Recovered/Resolved]
  - Micturition urgency [Recovered/Resolved]
  - Dyspnoea [Recovered/Resolved]
  - Erythema [Recovered/Resolved]
  - Genital rash [Recovered/Resolved]
  - Rash [Recovered/Resolved]
  - Nonspecific reaction [Recovered/Resolved]
  - Urticaria [Not Recovered/Not Resolved]
  - Nasal congestion [Not Recovered/Not Resolved]
  - Headache [Not Recovered/Not Resolved]
  - Feeling drunk [Unknown]
  - Asthma [Unknown]
  - Rhinitis [Unknown]
  - Drug hypersensitivity [Unknown]
  - Product use in unapproved indication [Unknown]

NARRATIVE: CASE EVENT DATE: 20240419
